FAERS Safety Report 7756249-3 (Version None)
Quarter: 2011Q3

REPORT INFORMATION
  Report Type: 
  Country: None (occurrence: None)
  Receive Date: 20110916
  Receipt Date: 20110818
  Transmission Date: 20111222
  Serious: No
  Sender: FDA-Public Use
  Company Number: US-ABBOTT-11P-163-0848072-00

PATIENT
  Sex: Female
  Weight: 75.364 kg

DRUGS (9)
  1. TIAZAC [Concomitant]
     Indication: CARDIAC DISORDER
  2. TRILIPIX [Suspect]
     Indication: BLOOD TRIGLYCERIDES INCREASED
     Dates: start: 20110401, end: 20110801
  3. LOVAZA [Concomitant]
     Indication: BLOOD CHOLESTEROL INCREASED
  4. SYNTHROID [Concomitant]
     Indication: HYPOTHYROIDISM
  5. PRAVASTATIN [Concomitant]
     Indication: BLOOD CHOLESTEROL INCREASED
  6. NEXIUM [Concomitant]
     Indication: GASTROOESOPHAGEAL REFLUX DISEASE
  7. AVAPRO [Concomitant]
     Indication: HYPERTENSION
  8. MULTI-VITAMIN [Concomitant]
     Indication: PRODUCT USED FOR UNKNOWN INDICATION
  9. INSULIN [Concomitant]
     Indication: DIABETES MELLITUS

REACTIONS (4)
  - HAEMORRHOIDS [None]
  - OCCULT BLOOD POSITIVE [None]
  - ABDOMINAL PAIN [None]
  - MYALGIA [None]
